FAERS Safety Report 24063903 (Version 6)
Quarter: 2024Q3

REPORT INFORMATION
  Report Type: Spontaneous
  Country: US (occurrence: US)
  Receive Date: 20240709
  Receipt Date: 20240911
  Transmission Date: 20241016
  Serious: Yes (Hospitalization, Other)
  Sender: IPSEN
  Company Number: US-IPSEN Group, Research and Development-2023-19685

PATIENT
  Age: 84 Year
  Sex: Female
  Weight: 53 kg

DRUGS (28)
  1. TAZVERIK [Suspect]
     Active Substance: TAZEMETOSTAT HYDROBROMIDE
     Indication: Follicular lymphoma stage I
     Dosage: 800 MG, TWICE DAILY.
     Route: 048
     Dates: start: 20230728
  2. ACETAMINOPHEN [Concomitant]
     Active Substance: ACETAMINOPHEN
     Route: 048
  3. ALLOPURINOL [Concomitant]
     Active Substance: ALLOPURINOL
  4. ASPERCREME [Concomitant]
  5. BRINZOLAMIDE [Concomitant]
     Active Substance: BRINZOLAMIDE
  6. DIPHENHYDRAMINE [Concomitant]
     Active Substance: DIPHENHYDRAMINE
  7. ELIQUIS [Concomitant]
     Active Substance: APIXABAN
     Route: 048
  8. FAMOTIDINE [Concomitant]
     Active Substance: FAMOTIDINE
     Route: 048
  9. GLUCOSAMINE [Concomitant]
     Active Substance: GLUCOSAMINE
     Route: 048
  10. CALCIUM +VIT D3 [Concomitant]
  11. METOPROLOL SUCCINATE [Concomitant]
     Active Substance: METOPROLOL SUCCINATE
     Dosage: EXTENDED RELEASE
  12. NYSTATIN [Concomitant]
     Active Substance: NYSTATIN
     Dosage: EXTERNAL POWDER SALINE NOSE NASAL SOLUTION
  13. TIMOLOL MALEATE [Concomitant]
     Active Substance: TIMOLOL MALEATE
     Route: 047
  14. TRAVOPROST [Concomitant]
     Active Substance: TRAVOPROST
     Dosage: (BAK FREE) OPHTHALMIC
  15. FUROSEMIDE [Concomitant]
     Active Substance: FUROSEMIDE
  16. DIGOXIN [Concomitant]
     Active Substance: DIGOXIN
  17. VITAMIN D3 [Concomitant]
     Active Substance: CHOLECALCIFEROL
  18. SB SALINE NOSE [Concomitant]
  19. LOSARTAN POTASSIUM [Concomitant]
     Active Substance: LOSARTAN POTASSIUM
  20. DIPHENHYDRAMINE [Concomitant]
     Active Substance: DIPHENHYDRAMINE
  21. DOXYCYCLINE HYCLATE [Concomitant]
     Active Substance: DOXYCYCLINE HYCLATE
  22. AZOPT [Concomitant]
     Active Substance: BRINZOLAMIDE
     Route: 047
  23. CALCIUM CARBONATE\VITAMIN D [Concomitant]
     Active Substance: CALCIUM CARBONATE\VITAMIN D
     Dosage: 600-3.125MG/MCG
     Route: 048
  24. LOPERAMIDE [Concomitant]
     Active Substance: LOPERAMIDE
     Route: 048
  25. COZAAR [Concomitant]
     Active Substance: LOSARTAN POTASSIUM
     Route: 048
  26. VITAMINS [Concomitant]
     Active Substance: VITAMINS
  27. TRAVATAN Z [Concomitant]
     Active Substance: TRAVOPROST
     Route: 047
  28. TYLENOL [Concomitant]
     Active Substance: ACETAMINOPHEN
     Route: 047

REACTIONS (24)
  - Pneumonia [Recovering/Resolving]
  - Cardiac failure [Unknown]
  - Pneumothorax [Not Recovered/Not Resolved]
  - Pericardial effusion [Unknown]
  - Pulmonary oedema [Unknown]
  - Dyspnoea [Not Recovered/Not Resolved]
  - Nausea [Unknown]
  - Fatigue [Not Recovered/Not Resolved]
  - Peripheral swelling [Not Recovered/Not Resolved]
  - Pain [Unknown]
  - Rash [Recovering/Resolving]
  - Weight decreased [Unknown]
  - Cough [Not Recovered/Not Resolved]
  - Vaginal haemorrhage [Not Recovered/Not Resolved]
  - Oedema peripheral [Unknown]
  - Heart rate increased [Unknown]
  - Tachycardia [Unknown]
  - Epistaxis [Recovered/Resolved]
  - Sinusitis [Not Recovered/Not Resolved]
  - Epistaxis [Not Recovered/Not Resolved]
  - Nasopharyngitis [Not Recovered/Not Resolved]
  - Malaise [Unknown]
  - Dermatitis contact [Recovering/Resolving]
  - Product dose omission issue [Unknown]

NARRATIVE: CASE EVENT DATE: 20240301
